FAERS Safety Report 18897396 (Version 5)
Quarter: 2021Q3

REPORT INFORMATION
  Report Type: Report from Study
  Country: None (occurrence: US)
  Receive Date: 20210215
  Receipt Date: 20210721
  Transmission Date: 20211014
  Serious: Yes (Other)
  Sender: FDA-Public Use
  Company Number: US-ABBVIE-20K-163-3710881-00

PATIENT
  Sex: Female

DRUGS (7)
  1. HUMIRA [Suspect]
     Active Substance: ADALIMUMAB
     Indication: COLITIS ULCERATIVE
     Dosage: CITRATE FREE
     Route: 058
     Dates: end: 2021
  2. HUMIRA [Suspect]
     Active Substance: ADALIMUMAB
     Dosage: CITRATE FREE
     Route: 058
     Dates: start: 202103
  3. HUMIRA [Suspect]
     Active Substance: ADALIMUMAB
     Indication: HIDRADENITIS
     Dosage: CITRATE FREE
     Route: 058
     Dates: start: 202102, end: 2021
  4. HUMIRA [Suspect]
     Active Substance: ADALIMUMAB
     Dosage: CITRATE FREE
     Route: 058
  5. PFIZER?BIONTECH COVID?19 VACCINE [Suspect]
     Active Substance: TOZINAMERAN
     Dosage: PFIZER?SECOND DOSE
     Route: 030
     Dates: start: 20210429, end: 20210429
  6. HUMIRA [Suspect]
     Active Substance: ADALIMUMAB
     Indication: RHEUMATOID ARTHRITIS
     Dosage: CITRATE FREE
     Route: 058
     Dates: end: 2020
  7. PFIZER?BIONTECH COVID?19 VACCINE [Suspect]
     Active Substance: TOZINAMERAN
     Indication: COVID-19 IMMUNISATION
     Dosage: PFIZER?FIRST DOSE
     Route: 030
     Dates: start: 2021, end: 2021

REACTIONS (20)
  - Abdominal discomfort [Not Recovered/Not Resolved]
  - Postoperative wound infection [Recovering/Resolving]
  - Condition aggravated [Recovering/Resolving]
  - Incision site pain [Not Recovered/Not Resolved]
  - Fatigue [Not Recovered/Not Resolved]
  - Sinusitis [Unknown]
  - Illness [Not Recovered/Not Resolved]
  - Wrist surgery [Not Recovered/Not Resolved]
  - Livedo reticularis [Not Recovered/Not Resolved]
  - Incision site discharge [Recovering/Resolving]
  - Post procedural discharge [Unknown]
  - Dysphonia [Not Recovered/Not Resolved]
  - Impaired healing [Not Recovered/Not Resolved]
  - Hyperhidrosis [Unknown]
  - Procedural haemorrhage [Not Recovered/Not Resolved]
  - Colitis ulcerative [Unknown]
  - Hidradenitis [Recovering/Resolving]
  - Secretion discharge [Not Recovered/Not Resolved]
  - Paranasal sinus hypersecretion [Not Recovered/Not Resolved]
  - Nasopharyngitis [Not Recovered/Not Resolved]

NARRATIVE: CASE EVENT DATE: 2010
